FAERS Safety Report 10099478 (Version 2)
Quarter: 2014Q3

REPORT INFORMATION
  Report Type: Spontaneous
  Country: US (occurrence: US)
  Receive Date: 20140423
  Receipt Date: 20140903
  Transmission Date: 20150326
  Serious: Yes (Hospitalization, Other)
  Sender: FDA-Public Use
  Company Number: US-BAYER-2014-058321

PATIENT
  Age: 35 Year
  Sex: Female
  Weight: 83.9 kg

DRUGS (6)
  1. DARVOCET [Concomitant]
     Active Substance: ACETAMINOPHEN\PROPOXYPHENE HYDROCHLORIDE
  2. CIPRO [Concomitant]
     Active Substance: CIPROFLOXACIN HYDROCHLORIDE
     Dosage: 500 MG, BID
  3. VICODIN [Concomitant]
     Active Substance: ACETAMINOPHEN\HYDROCODONE BITARTRATE
  4. YASMIN [Suspect]
     Active Substance: DROSPIRENONE\ETHINYL ESTRADIOL
     Dosage: UNK
     Dates: start: 2002, end: 2004
  5. ACIPHEX [Concomitant]
     Active Substance: RABEPRAZOLE SODIUM
  6. FENTANYL. [Concomitant]
     Active Substance: FENTANYL

REACTIONS (5)
  - Peripheral swelling [None]
  - Pain in extremity [None]
  - Deep vein thrombosis [None]
  - Cholelithiasis [None]
  - Injury [None]

NARRATIVE: CASE EVENT DATE: 2002
